APPROVED DRUG PRODUCT: OZOBAX DS
Active Ingredient: BACLOFEN
Strength: 10MG/5ML
Dosage Form/Route: SOLUTION;ORAL
Application: N208193 | Product #002 | TE Code: AA
Applicant: METACEL PHARMACEUTICALS LLC
Approved: Oct 12, 2023 | RLD: Yes | RS: Yes | Type: RX